FAERS Safety Report 11060980 (Version 2)
Quarter: 2015Q2

REPORT INFORMATION
  Report Type: Spontaneous
  Country: US (occurrence: US)
  Receive Date: 20150424
  Receipt Date: 20150524
  Transmission Date: 20150821
  Serious: Yes (Other)
  Sender: FDA-Public Use
  Company Number: US-JNJFOC-20150401490

PATIENT

DRUGS (2)
  1. ABCIXIMAB [Suspect]
     Active Substance: ABCIXIMAB
     Indication: CEREBROVASCULAR ACCIDENT
     Route: 042
  2. ABCIXIMAB [Suspect]
     Active Substance: ABCIXIMAB
     Indication: CEREBROVASCULAR ACCIDENT
     Route: 042

REACTIONS (2)
  - Haemorrhage [Unknown]
  - Off label use [Unknown]
